FAERS Safety Report 9820611 (Version 1)
Quarter: 2013Q4

REPORT INFORMATION
  Report Type: Spontaneous
  Country: US (occurrence: None)
  Receive Date: 20131028
  Receipt Date: 20131028
  Transmission Date: 20140711
  Serious: Yes (Other)
  Sender: FDA-Public Use
  Company Number: 2013US001662

PATIENT
  Age: 60 Year
  Sex: Female

DRUGS (7)
  1. ICLUSIG [Suspect]
     Indication: CHRONIC MYELOID LEUKAEMIA
     Route: 048
     Dates: start: 20130308
  2. ZESTRIL (LISINOPRIL) [Concomitant]
  3. MELOXICAM (MELOXICAM) [Concomitant]
  4. METFORMIN (METFORMIN) [Concomitant]
  5. PROAIR (FLUTICASONE PROPIONATE) [Concomitant]
  6. TRAMDOL (TRAMADOL) [Concomitant]
  7. GLIMEPERIDE (GLIMEPERIDE) [Concomitant]

REACTIONS (1)
  - Pruritus generalised [None]
